FAERS Safety Report 9550232 (Version 1)
Quarter: 2013Q3

REPORT INFORMATION
  Report Type: Spontaneous
  Country: US (occurrence: US)
  Receive Date: 20130924
  Receipt Date: 20130924
  Transmission Date: 20140515
  Serious: No
  Sender: FDA-Public Use
  Company Number: US-SANOFI-AVENTIS-2013SA064408

PATIENT
  Sex: Female
  Weight: 90 kg

DRUGS (7)
  1. AUBAGIO [Suspect]
     Route: 048
  2. WELLBUTRIN [Concomitant]
  3. CELEXA [Concomitant]
  4. ZANTAC [Concomitant]
  5. PRILOSEC [Concomitant]
  6. TRAZODONE [Concomitant]
  7. CYCLOBENZAPRINE [Concomitant]

REACTIONS (1)
  - Drug dose omission [Unknown]
